FAERS Safety Report 25230562 (Version 2)
Quarter: 2025Q2

REPORT INFORMATION
  Report Type: Report from Study
  Country: EG (occurrence: EG)
  Receive Date: 20250423
  Receipt Date: 20250502
  Transmission Date: 20250717
  Serious: Yes (Other)
  Sender: NOVARTIS
  Company Number: EG-002147023-NVSC2025EG066076

PATIENT
  Sex: Male
  Weight: 67 kg

DRUGS (5)
  1. ENTRESTO [Suspect]
     Active Substance: SACUBITRIL\VALSARTAN
     Indication: Cardiac failure
     Dosage: 100 MG, BID (1 TABLET TWICE DAILY) (END DATE: 6 MONTHS AGO)
     Route: 048
     Dates: start: 2019
  2. ENTRESTO [Suspect]
     Active Substance: SACUBITRIL\VALSARTAN
     Dosage: 50 MG, BID ( HALF TABLET TWICE DAILY (OFF-LABEL DOSE)) (START DATE: 3 MONTHS AGO, END DATE: ONGOING)
     Route: 048
  3. Empacoza [Concomitant]
     Indication: Product used for unknown indication
     Dosage: 1 DOSAGE FORM, QD (1 TABLET ONCE DAILY) (START DATE: 3 MONTHS AGO, END DATE: ONGOING)
     Route: 048
  4. CARNITINE [Concomitant]
     Active Substance: CARNITINE
     Indication: Product used for unknown indication
     Dosage: 1 DOSAGE FORM, BID (1 CAPSULE TWICE DAILY) (START DATE: 3 MONTHS AGO, END DATE: ONGOING)
     Route: 048
  5. WARFARIN SODIUM [Concomitant]
     Active Substance: WARFARIN SODIUM
     Indication: Antiplatelet therapy
     Dosage: 2.5 MG, QD (TABLET) (START DATE: 21 YEARS AGO, END DATE: ONGOING)
     Route: 048

REACTIONS (3)
  - Hypotension [Recovering/Resolving]
  - Dizziness [Recovering/Resolving]
  - Wrong technique in product usage process [Unknown]
